FAERS Safety Report 5169048-6 (Version None)
Quarter: 2006Q4

REPORT INFORMATION
  Report Type: 
  Country: None (occurrence: None)
  Receive Date: 20061201
  Receipt Date: 20061121
  Transmission Date: 20070319
  Serious: Yes (Hospitalization, Other)
  Sender: FDA-Public Use
  Company Number: 2006-02489

PATIENT
  Age: 82 Year
  Sex: Female
  Weight: 64.9 kg

DRUGS (6)
  1. VELCADE [Suspect]
     Indication: MULTIPLE MYELOMA
     Dosage: 1.00 MG/M2, INTRAVENOUS
     Route: 042
     Dates: start: 20060606, end: 20060706
  2. ALTACE [Concomitant]
  3. DARVOCET-N 100 [Concomitant]
  4. NEURONTIN [Concomitant]
  5. LORTAB [Concomitant]
  6. ASPIRIN [Concomitant]

REACTIONS (30)
  - ACUTE PULMONARY OEDEMA [None]
  - ANAEMIA [None]
  - AORTIC VALVE DISEASE [None]
  - ASTHENIA [None]
  - ATRIAL FIBRILLATION [None]
  - ATRIAL FLUTTER [None]
  - BLOOD PH DECREASED [None]
  - BLOOD PRESSURE INCREASED [None]
  - BRAIN NATRIURETIC PEPTIDE INCREASED [None]
  - COLD SWEAT [None]
  - DECREASED APPETITE [None]
  - DIARRHOEA [None]
  - DILATATION ATRIAL [None]
  - EJECTION FRACTION DECREASED [None]
  - ELECTROCARDIOGRAM ST SEGMENT DEPRESSION [None]
  - FIBRIN D DIMER INCREASED [None]
  - HAEMOGLOBIN DECREASED [None]
  - HERPES ZOSTER [None]
  - HYPOVOLAEMIA [None]
  - LUNG INFILTRATION [None]
  - MITRAL VALVE INCOMPETENCE [None]
  - MUSCULAR WEAKNESS [None]
  - NEUROPATHY PERIPHERAL [None]
  - PCO2 INCREASED [None]
  - PNEUMONITIS [None]
  - PO2 INCREASED [None]
  - RESPIRATORY DISTRESS [None]
  - TACHYCARDIA [None]
  - VASODILATATION [None]
  - WEIGHT DECREASED [None]
